FAERS Safety Report 7371440-6 (Version None)
Quarter: 2011Q1

REPORT INFORMATION
  Report Type: 
  Country: None (occurrence: None)
  Receive Date: 20110324
  Receipt Date: 20110315
  Transmission Date: 20110831
  Serious: Yes (Hospitalization, Other)
  Sender: FDA-Public Use
  Company Number: US-NOVOPROD-324591

PATIENT
  Age: 45 Year
  Sex: Male
  Weight: 112.2 kg

DRUGS (3)
  1. DOXYCYCLINE [Suspect]
     Indication: TOOTH INFECTION
  2. LISINOPRIL AND HYDROCHLOROTHIAZIDE [Concomitant]
     Indication: PRODUCT USED FOR UNKNOWN INDICATION
  3. VICTOZA [Suspect]
     Indication: TYPE 2 DIABETES MELLITUS
     Dosage: UNK
     Route: 058

REACTIONS (2)
  - TOOTH INFECTION [None]
  - PANCREATITIS [None]
